FAERS Safety Report 8575068-1 (Version None)
Quarter: 2012Q3

REPORT INFORMATION
  Report Type: 
  Country: None (occurrence: None)
  Receive Date: 20120807
  Receipt Date: 20120730
  Transmission Date: 20120928
  Serious: Yes (Other)
  Sender: FDA-Public Use
  Company Number: US-BAYER-2012-007483

PATIENT
  Age: 23 Year
  Sex: Female
  Weight: 90.703 kg

DRUGS (9)
  1. PRENATAL [Concomitant]
     Route: 048
  2. REGLAN [Concomitant]
     Route: 048
  3. PHENERGAN HCL [Concomitant]
     Dosage: UNK
     Route: 048
  4. ZITHROMAX [Concomitant]
     Route: 048
  5. MIRENA [Suspect]
     Indication: CONTRACEPTION
     Dosage: 20 ?G/D, CONT
     Route: 015
     Dates: start: 20111021
  6. PROMETHAZINE [Concomitant]
     Indication: NAUSEA
     Dosage: UNK UNK, PRN
     Route: 054
     Dates: start: 20120629
  7. PROMETHAZINE [Concomitant]
     Indication: VOMITING
  8. ZOFRAN [Concomitant]
     Route: 048
  9. ZITHROMAX [Concomitant]
     Route: 048

REACTIONS (6)
  - DEVICE DISLOCATION [None]
  - DEVICE EXPULSION [None]
  - MEDICAL DEVICE COMPLICATION [None]
  - PREGNANCY WITH CONTRACEPTIVE DEVICE [None]
  - NAUSEA [None]
  - VOMITING [None]
